FAERS Safety Report 4707623-0 (Version None)
Quarter: 2005Q3

REPORT INFORMATION
  Report Type: 
  Country: None (occurrence: None)
  Receive Date: 20050706
  Receipt Date: 20050628
  Transmission Date: 20060218
  Serious: Yes (Other)
  Sender: FDA-Public Use
  Company Number: US-MERCK-0506USA03968

PATIENT
  Sex: Female

DRUGS (2)
  1. VIOXX [Suspect]
     Indication: TINNITUS
     Route: 048
     Dates: start: 19990101, end: 20021201
  2. VIOXX [Suspect]
     Indication: CARPAL TUNNEL SYNDROME
     Route: 048
     Dates: start: 19990101, end: 20021201

REACTIONS (4)
  - ANGINA PECTORIS [None]
  - CARDIAC DISORDER [None]
  - CEREBROVASCULAR ACCIDENT [None]
  - MYOCARDIAL INFARCTION [None]
